FAERS Safety Report 7286191-6 (Version None)
Quarter: 2011Q1

REPORT INFORMATION
  Report Type: 
  Country: None (occurrence: None)
  Receive Date: 20110210
  Receipt Date: 20110126
  Transmission Date: 20110831
  Serious: Yes (Other)
  Sender: FDA-Public Use
  Company Number: PHEH2011US00449

PATIENT
  Sex: Female

DRUGS (1)
  1. AREDIA [Suspect]
     Dosage: UNK
     Dates: end: 19990101

REACTIONS (3)
  - HYPOAESTHESIA [None]
  - PARALYSIS [None]
  - NERVOUS SYSTEM DISORDER [None]
